FAERS Safety Report 5316675-9 (Version None)
Quarter: 2007Q2

REPORT INFORMATION
  Report Type: 
  Country: None (occurrence: None)
  Receive Date: 20070430
  Receipt Date: 20070430
  Transmission Date: 20071010
  Serious: No
  Sender: FDA-Public Use
  Company Number: None

PATIENT
  Age: 9 Year
  Sex: Male
  Weight: 40.8237 kg

DRUGS (1)
  1. DAYTRANA [Suspect]
     Indication: ATTENTION DEFICIT/HYPERACTIVITY DISORDER
     Dosage: 1 PATCH EVERY MORNING DAILY TRANSDERMAL
     Route: 062
     Dates: start: 20070425, end: 20070426

REACTIONS (1)
  - PHARMACEUTICAL PRODUCT COMPLAINT [None]
